FAERS Safety Report 21225501 (Version 2)
Quarter: 2022Q3

REPORT INFORMATION
  Report Type: Spontaneous
  Country: DE (occurrence: DE)
  Receive Date: 20220818
  Receipt Date: 20220829
  Transmission Date: 20221027
  Serious: Yes (Hospitalization, Other)
  Sender: FDA-Public Use
  Company Number: DE-ZAMBON-202202333DEU

PATIENT
  Age: 61 Year
  Sex: Male

DRUGS (3)
  1. XADAGO [Suspect]
     Active Substance: SAFINAMIDE MESYLATE
     Indication: Product used for unknown indication
     Dosage: NOT PROVIDED
     Route: 048
     Dates: start: 20220804, end: 20220804
  2. XADAGO [Suspect]
     Active Substance: SAFINAMIDE MESYLATE
     Dosage: LONG-TERM TREATMENT
  3. LEVODOPA [Suspect]
     Active Substance: LEVODOPA
     Indication: Product used for unknown indication
     Dosage: NOT PROVIDED
     Route: 048
     Dates: start: 20220804, end: 20220804

REACTIONS (2)
  - Suicide attempt [Unknown]
  - Intentional overdose [Unknown]
